FAERS Safety Report 10252800 (Version 1)
Quarter: 2014Q2

REPORT INFORMATION
  Report Type: Spontaneous
  Country: US (occurrence: US)
  Receive Date: 20140623
  Receipt Date: 20140623
  Transmission Date: 20141212
  Serious: No
  Sender: FDA-Public Use
  Company Number: US-PFIZER INC-2014169127

PATIENT
  Sex: Male

DRUGS (1)
  1. ZYVOX [Suspect]
     Dosage: UNK, 2X/DAY
     Dates: start: 201406, end: 201406

REACTIONS (4)
  - Dyspnoea [Unknown]
  - Asthenia [Unknown]
  - Pallor [Unknown]
  - Tongue discolouration [Unknown]
